FAERS Safety Report 25136898 (Version 1)
Quarter: 2025Q1

REPORT INFORMATION
  Report Type: Spontaneous
  Country: CA (occurrence: CA)
  Receive Date: 20250328
  Receipt Date: 20250328
  Transmission Date: 20250409
  Serious: Yes (Hospitalization, Other)
  Sender: MERCK SHARP & DOHME LLC
  Company Number: CA-009507513-2266751

PATIENT
  Age: 55 Year
  Sex: Female
  Weight: 125 kg

DRUGS (18)
  1. KEYTRUDA [Suspect]
     Active Substance: PEMBROLIZUMAB
     Indication: Adenocarcinoma of the cervix
     Route: 065
  2. AVASTIN [Suspect]
     Active Substance: BEVACIZUMAB
     Indication: Adenocarcinoma of the cervix
     Route: 042
  3. PARAPLATIN [Suspect]
     Active Substance: CARBOPLATIN
     Indication: Adenocarcinoma of the cervix
     Route: 042
  4. POTASSIUM CHLORIDE [Concomitant]
     Active Substance: POTASSIUM CHLORIDE
     Route: 065
  5. SENNA [Concomitant]
     Active Substance: SENNOSIDES
     Route: 065
  6. TAXOL [Suspect]
     Active Substance: PACLITAXEL
     Indication: Adenocarcinoma of the cervix
     Route: 042
  7. ATORVASTATIN [Concomitant]
     Active Substance: ATORVASTATIN
     Route: 065
  8. BUTYLSCOPOLAMINE BROMIDE [Concomitant]
     Active Substance: BUTYLSCOPOLAMINE BROMIDE
     Route: 065
  9. CHOLECALCIFEROL [Concomitant]
     Active Substance: CHOLECALCIFEROL
     Route: 065
  10. CISPLATIN [Concomitant]
     Active Substance: CISPLATIN
     Route: 042
  11. CLONAZEPAM [Concomitant]
     Active Substance: CLONAZEPAM
     Route: 065
  12. DEXAMETHASONE [Concomitant]
     Active Substance: DEXAMETHASONE
     Route: 065
  13. LEVOTHYROXINE [Concomitant]
     Active Substance: LEVOTHYROXINE
     Route: 065
  14. LOSARTAN POTASSIUM  AND  HYDROCHLOROTHIAZIDE [Concomitant]
     Route: 065
  15. METOCLOPRAMIDE [Concomitant]
     Active Substance: METOCLOPRAMIDE
     Route: 065
  16. NYSTATIN [Suspect]
     Active Substance: NYSTATIN
     Route: 065
  17. ONDANSETRON [Concomitant]
     Active Substance: ONDANSETRON
     Route: 065
  18. PANTOPRAZOLE [Concomitant]
     Active Substance: PANTOPRAZOLE
     Route: 065

REACTIONS (3)
  - Escherichia test positive [Recovering/Resolving]
  - Febrile neutropenia [Recovering/Resolving]
  - Urinary tract infection [Recovering/Resolving]
